FAERS Safety Report 8575760-9 (Version None)
Quarter: 2012Q3

REPORT INFORMATION
  Report Type: 
  Country: None (occurrence: None)
  Receive Date: 20120807
  Receipt Date: 20120806
  Transmission Date: 20120928
  Serious: Yes (Hospitalization, Other)
  Sender: FDA-Public Use
  Company Number: PHEH2006US05803

PATIENT
  Sex: Female
  Weight: 75.736 kg

DRUGS (37)
  1. AREDIA [Suspect]
     Indication: BREAST CANCER METASTATIC
     Dosage: 90 MG, QW3
     Dates: start: 19980101
  2. HERCEPTIN [Concomitant]
     Indication: BREAST CANCER METASTATIC
     Dates: start: 20000701, end: 20001201
  3. LIPITOR [Concomitant]
     Dosage: 10 MG, QD
     Route: 048
  4. COUMADIN [Concomitant]
     Dosage: 1 MG, QD
     Route: 048
  5. TORADOL [Concomitant]
  6. PROVERA [Concomitant]
  7. MEVACOR [Concomitant]
     Indication: BLOOD CHOLESTEROL INCREASED
  8. ZOFRAN [Concomitant]
  9. PRINIVIL [Concomitant]
  10. TAXOL [Concomitant]
     Dates: start: 20050201
  11. SYNTHROID [Concomitant]
     Indication: HYPOTHYROIDISM
     Dosage: 0.1 MG, QD
     Route: 048
  12. DARVOCET-N 50 [Concomitant]
  13. PREMARIN [Concomitant]
  14. ZOMETA [Suspect]
     Indication: BREAST CANCER METASTATIC
     Dates: start: 19980101
  15. XELODA [Suspect]
  16. HERCEPTIN [Concomitant]
     Dates: start: 20050201
  17. TAMOXIFEN CITRATE [Concomitant]
     Dosage: 20 MG, QD
     Route: 048
     Dates: start: 19980101
  18. PRILOSEC [Concomitant]
     Dosage: 20 MG, QD
     Route: 048
  19. AROMASIN [Concomitant]
     Dosage: 25 MG, QD
     Route: 048
  20. DEMEROL [Concomitant]
  21. COMPAZINE [Concomitant]
  22. VISTARIL [Concomitant]
  23. VITAMIN E [Concomitant]
     Dosage: 400 IU, QD
     Route: 048
  24. ACIPHEX [Concomitant]
  25. NITROGLYCERIN [Concomitant]
  26. DIGOXIN [Concomitant]
  27. TAXOL [Concomitant]
     Indication: BREAST CANCER METASTATIC
     Dates: start: 20000701, end: 20001201
  28. RADIATION TREATMENT [Concomitant]
     Indication: BREAST CANCER METASTATIC
  29. DALMANE [Concomitant]
  30. NORVASC [Concomitant]
  31. WARFARIN SODIUM [Concomitant]
  32. MIDRIN [Concomitant]
  33. PLAVIX [Concomitant]
  34. CALCIUM [Concomitant]
     Dosage: 600 MG, QD
     Route: 048
  35. LISINOPRIL [Concomitant]
  36. ZESTRIL [Concomitant]
     Indication: HYPERTENSION
     Dosage: 5 MG,
  37. COREG [Concomitant]

REACTIONS (33)
  - BILIARY COLIC [None]
  - ANGINA UNSTABLE [None]
  - ANXIETY [None]
  - HEPATIC NEOPLASM [None]
  - PERICARDIAL EFFUSION [None]
  - HYPOCALCAEMIA [None]
  - SYNCOPE [None]
  - PHARYNGITIS [None]
  - DISCOMFORT [None]
  - BUNDLE BRANCH BLOCK [None]
  - VASOSPASM [None]
  - RIB FRACTURE [None]
  - RENAL CYST [None]
  - OSTEONECROSIS OF JAW [None]
  - IMPAIRED HEALING [None]
  - ELECTROCARDIOGRAM QT PROLONGED [None]
  - BRUXISM [None]
  - UVULITIS [None]
  - PAIN [None]
  - CARDIOMYOPATHY [None]
  - MUSCLE SPASMS [None]
  - DIZZINESS [None]
  - ROAD TRAFFIC ACCIDENT [None]
  - TRAUMATIC ARTHRITIS [None]
  - LARYNGEAL OEDEMA [None]
  - INJURY [None]
  - PULMONARY MASS [None]
  - PARAESTHESIA [None]
  - AORTIC VALVE INCOMPETENCE [None]
  - PLEURAL EFFUSION [None]
  - LOSS OF CONSCIOUSNESS [None]
  - VASCULAR CALCIFICATION [None]
  - OEDEMA PERIPHERAL [None]
